FAERS Safety Report 26056004 (Version 2)
Quarter: 2025Q4

REPORT INFORMATION
  Report Type: Spontaneous
  Country: EU (occurrence: None)
  Receive Date: 20251118
  Receipt Date: 20251128
  Transmission Date: 20260117
  Serious: Yes (Other)
  Sender: CHIESI
  Company Number: EU-CHIESI-2025CHF07896

PATIENT
  Age: 43 Year
  Sex: Female
  Weight: 85 kg

DRUGS (1)
  1. LAMZEDE [Suspect]
     Active Substance: VELMANASE ALFA-TYCV
     Indication: Alpha-mannosidosis
     Dosage: 90 MILLIGRAM, QW

REACTIONS (1)
  - Endometrial ablation [Recovered/Resolved]

NARRATIVE: CASE EVENT DATE: 20251028
